FAERS Safety Report 8611482-3 (Version None)
Quarter: 2012Q3

REPORT INFORMATION
  Report Type: 
  Country: None (occurrence: None)
  Receive Date: 20120822
  Receipt Date: 20120810
  Transmission Date: 20120928
  Serious: Yes (Other)
  Sender: FDA-Public Use
  Company Number: US-PFIZER INC-2012033593

PATIENT
  Age: 57 Year
  Sex: Male
  Weight: 102 kg

DRUGS (7)
  1. ONDANSETRON [Concomitant]
     Indication: PROPHYLAXIS OF NAUSEA AND VOMITING
     Dosage: UNK, AS NEEDED
     Route: 048
     Dates: start: 20101028
  2. CRIZOTINIB [Suspect]
     Dosage: 200 MG, 2X/DAY
     Route: 048
     Dates: start: 20101209
  3. COUMADIN [Concomitant]
     Indication: DEEP VEIN THROMBOSIS
     Dosage: UNK, 1X/DAY
     Route: 048
  4. CRIZOTINIB [Suspect]
     Indication: NON-SMALL CELL LUNG CANCER
     Dosage: 250 MG, 2X/DAY
     Route: 048
     Dates: start: 20101028, end: 20101208
  5. TYLENOL [Concomitant]
     Indication: OSTEOARTHRITIS
     Dosage: UNK, AS NEEDED
     Route: 048
     Dates: start: 20101028
  6. IBUPROFEN [Concomitant]
     Indication: PAIN
     Dosage: UNK, AS NEEDED
     Route: 048
     Dates: start: 20101028
  7. DIPHENOXYLATE HCL AND ATROPINE SULFATE [Concomitant]
     Indication: DIARRHOEA
     Dosage: UNK, AS NEEDED
     Route: 048
     Dates: start: 20110608

REACTIONS (3)
  - MALIGNANT MELANOMA [None]
  - NEOPLASM MALIGNANT [None]
  - BASAL CELL CARCINOMA [None]
